FAERS Safety Report 8499910-8 (Version None)
Quarter: 2012Q3

REPORT INFORMATION
  Report Type: 
  Country: None (occurrence: None)
  Receive Date: 20120710
  Receipt Date: 20120627
  Transmission Date: 20120928
  Serious: No
  Sender: FDA-Public Use
  Company Number: US-ASTRAZENECA-2010SE54105

PATIENT
  Age: 57 Year
  Sex: Female

DRUGS (7)
  1. NEXIUM [Suspect]
     Indication: GASTRITIS
     Route: 048
  2. NEXIUM [Suspect]
     Indication: GASTROOESOPHAGEAL REFLUX DISEASE
     Route: 048
  3. PRILOSEC [Suspect]
     Route: 048
  4. ZANTAC [Concomitant]
  5. NEXIUM [Suspect]
     Route: 048
  6. PREVACID [Concomitant]
  7. NEXIUM [Suspect]
     Route: 048

REACTIONS (14)
  - VOMITING [None]
  - ABDOMINAL DISCOMFORT [None]
  - ABDOMINAL PAIN UPPER [None]
  - GASTROOESOPHAGEAL REFLUX DISEASE [None]
  - DYSPHAGIA [None]
  - PRESYNCOPE [None]
  - OROPHARYNGEAL DISCOMFORT [None]
  - DRUG INEFFECTIVE [None]
  - DISCOMFORT [None]
  - APHAGIA [None]
  - IRRITABLE BOWEL SYNDROME [None]
  - PAIN [None]
  - MALAISE [None]
  - DRUG DOSE OMISSION [None]
